FAERS Safety Report 4788193-8 (Version None)
Quarter: 2005Q4

REPORT INFORMATION
  Report Type: 
  Country: None (occurrence: None)
  Receive Date: 20051003
  Receipt Date: 20050922
  Transmission Date: 20060501
  Serious: Yes (Disabling)
  Sender: FDA-Public Use
  Company Number: MEDI-0003705

PATIENT
  Age: 2 Month
  Sex: Female

DRUGS (1)
  1. SYNAGIS [Suspect]
     Indication: ANTIVIRAL PROPHYLAXIS
     Dosage: 30 MG, 1 IN 30 D, INTRAMUSCULAR
     Route: 030
     Dates: start: 20030207, end: 20030207

REACTIONS (3)
  - ABASIA [None]
  - HYPERTONIA [None]
  - MUSCULOSKELETAL DISORDER [None]
